FAERS Safety Report 8531797-7 (Version None)
Quarter: 2012Q3

REPORT INFORMATION
  Report Type: 
  Country: None (occurrence: None)
  Receive Date: 20120711
  Receipt Date: 20120628
  Transmission Date: 20120928
  Serious: Yes (Other)
  Sender: FDA-Public Use
  Company Number: 2012-01022

PATIENT
  Age: 31 Year
  Sex: Female

DRUGS (14)
  1. LAMOTRIGINE [Concomitant]
  2. PHENYTOIN [Concomitant]
  3. PIRACETAM [Concomitant]
  4. VALPROIC ACID (VALPROATE) [Concomitant]
  5. ZONISAMIDE [Concomitant]
  6. PHENOBARBITAL TAB [Concomitant]
  7. CLONAZEPAM [Concomitant]
  8. CLOBAZAM [Concomitant]
  9. LEVETIRACETAM [Suspect]
     Indication: PRODUCT USED FOR UNKNOWN INDICATION
  10. LACOSAMIDE [Suspect]
     Indication: PRODUCT USED FOR UNKNOWN INDICATION
     Dosage: 300 MG (150 MG, 2 IN 1 D), UNK
  11. TOPIRAMATE [Concomitant]
  12. MIDAZOLAM [Concomitant]
  13. PHENOBARBITAL TAB [Concomitant]
  14. VIGABATRIN [Concomitant]

REACTIONS (5)
  - GAIT DISTURBANCE [None]
  - STATUS EPILEPTICUS [None]
  - GENERAL PHYSICAL HEALTH DETERIORATION [None]
  - DRUG INEFFECTIVE [None]
  - MOVEMENT DISORDER [None]
